FAERS Safety Report 23153117 (Version 1)
Quarter: 2023Q4

REPORT INFORMATION
  Report Type: Other
  Country: FR (occurrence: FR)
  Receive Date: 20231107
  Receipt Date: 20231107
  Transmission Date: 20240110
  Serious: Yes (Hospitalization, Other)
  Sender: FDA-Public Use
  Company Number: FR-GLENMARK PHARMACEUTICALS-2023GMK086332

PATIENT

DRUGS (2)
  1. TROSPIUM [Suspect]
     Active Substance: TROSPIUM
     Indication: Cystitis interstitial
     Dosage: 20 MILLIGRAM, QD
     Route: 048
     Dates: start: 20230905, end: 20230918
  2. ELMIRON [Suspect]
     Active Substance: PENTOSAN POLYSULFATE SODIUM
     Indication: Bladder pain
     Dosage: 300 MILLIGRAM, QD
     Route: 048
     Dates: start: 20230825, end: 20230918

REACTIONS (1)
  - Pancreatitis acute [Recovered/Resolved]

NARRATIVE: CASE EVENT DATE: 20230912
